FAERS Safety Report 10459167 (Version 2)
Quarter: 2014Q4

REPORT INFORMATION
  Report Type: Spontaneous
  Country: US (occurrence: US)
  Receive Date: 20140917
  Receipt Date: 20141023
  Transmission Date: 20150528
  Serious: Yes (Other)
  Sender: FDA-Public Use
  Company Number: US-TEVA-508990USA

PATIENT
  Age: 41 Year
  Sex: Female
  Weight: 99.88 kg

DRUGS (2)
  1. PARAGARD T380A [Suspect]
     Active Substance: COPPER
     Route: 015
     Dates: start: 20140912
  2. PARAGARD T380A [Suspect]
     Active Substance: COPPER
     Indication: CONTRACEPTION
     Route: 015
     Dates: start: 20140613, end: 20140912

REACTIONS (2)
  - Device dislocation [Recovered/Resolved]
  - Cholecystitis acute [Unknown]

NARRATIVE: CASE EVENT DATE: 20140831
